FAERS Safety Report 6550760-9 (Version None)
Quarter: 2010Q1

REPORT INFORMATION
  Report Type: 
  Country: None (occurrence: None)
  Receive Date: 20100125
  Receipt Date: 20100114
  Transmission Date: 20100710
  Serious: Yes (Hospitalization, Disabling)
  Sender: FDA-Public Use
  Company Number: PHHY2009DE42902

PATIENT
  Sex: Male
  Weight: 116 kg

DRUGS (11)
  1. ALISKIREN ALI+ [Suspect]
     Indication: HYPERTENSION
     Dosage: 300 MG, QD
     Route: 048
     Dates: start: 20081103
  2. RAMIPRIL [Concomitant]
     Dosage: 50MG/DAY
     Route: 048
  3. BISOPROLOL FUMARATE [Concomitant]
     Dosage: 15MG/DAY
     Route: 048
  4. INSULIN RAPID [Concomitant]
     Dosage: 100 IE/ML
  5. ALLOPURINOL [Concomitant]
     Dosage: 150MG/DAY
     Route: 048
  6. SIMVASTATIN [Concomitant]
     Dosage: 40 MG, QD
     Route: 048
  7. FALITHROM [Concomitant]
     Dosage: UNK
     Route: 048
  8. TORASEMIDE [Concomitant]
     Dosage: 20MG/DAY
     Route: 048
  9. DIGIMED [Concomitant]
     Dosage: 0.07 MG, QD
     Route: 048
  10. MOXONIDINE [Concomitant]
     Dosage: 0.6MG/DAY
     Route: 048
  11. ANTITHROMBOTIC AGENTS [Concomitant]

REACTIONS (2)
  - BLINDNESS UNILATERAL [None]
  - OCULAR VASCULAR DISORDER [None]
